FAERS Safety Report 4590482-7 (Version None)
Quarter: 2005Q1

REPORT INFORMATION
  Report Type: 
  Country: None (occurrence: None)
  Receive Date: 20050218
  Receipt Date: 20050218
  Transmission Date: 20050727
  Serious: Yes (Life-Threatening)
  Sender: FDA-Public Use
  Company Number: None

PATIENT
  Age: 47 Year
  Sex: Female

DRUGS (4)
  1. COPAXONE [Suspect]
     Indication: MULTIPLE SCLEROSIS
     Dosage: 20MG QD SUBCUTANEOUS
     Route: 058
     Dates: start: 20041120, end: 20041128
  2. ATENOLOL [Concomitant]
  3. KLOR-CON [Concomitant]
  4. DEMADEX [Concomitant]

REACTIONS (5)
  - ABSCESS [None]
  - ERYTHEMA [None]
  - INFLAMMATION [None]
  - PAIN [None]
  - SWELLING [None]
